FAERS Safety Report 23051569 (Version 2)
Quarter: 2023Q4

REPORT INFORMATION
  Report Type: Report from Study
  Country: TW (occurrence: TW)
  Receive Date: 20231010
  Receipt Date: 20231011
  Transmission Date: 20240110
  Serious: Yes (Other)
  Sender: FDA-Public Use
  Company Number: TW-002147023-NVSC2023TW185405

PATIENT
  Sex: Female

DRUGS (3)
  1. KISQALI [Suspect]
     Active Substance: RIBOCICLIB
     Indication: Hormone receptor positive HER2 negative breast cancer
     Dosage: 200 MG, QD, (200 MG / 3 TABLETS)
     Route: 048
     Dates: start: 20230731, end: 202309
  2. KISQALI [Suspect]
     Active Substance: RIBOCICLIB
     Indication: Disease progression
     Dosage: 200 MG, QD, (200 MG / 3 TABLETS)
     Route: 048
     Dates: start: 202309
  3. FEMARA [Suspect]
     Active Substance: LETROZOLE
     Indication: Breast cancer
     Dosage: 1 DOSAGE FORM
     Route: 048
     Dates: start: 20230731

REACTIONS (8)
  - Oral mucosal eruption [Recovering/Resolving]
  - Skin burning sensation [Recovering/Resolving]
  - Hypoaesthesia [Recovering/Resolving]
  - Oropharyngeal pain [Recovering/Resolving]
  - Weight decreased [Recovering/Resolving]
  - White blood cell count decreased [Recovering/Resolving]
  - Rash [Recovering/Resolving]
  - Arthralgia [Recovering/Resolving]
